FAERS Safety Report 20557198 (Version 1)
Quarter: 2022Q1

REPORT INFORMATION
  Report Type: Spontaneous
  Country: RU (occurrence: RU)
  Receive Date: 20220307
  Receipt Date: 20220307
  Transmission Date: 20220424
  Serious: Yes (Other)
  Sender: FDA-Public Use
  Company Number: RU-SUN PHARMACEUTICAL INDUSTRIES LTD-2022R1-328026

PATIENT
  Age: 19 Year
  Sex: Female

DRUGS (1)
  1. SOTRET [Suspect]
     Active Substance: ISOTRETINOIN
     Indication: Acne
     Dosage: 20 MILLIGRAM, DAILY
     Route: 048

REACTIONS (2)
  - Exposure during pregnancy [Unknown]
  - Abortion induced [Unknown]

NARRATIVE: CASE EVENT DATE: 20220201
